FAERS Safety Report 5765930-7 (Version None)
Quarter: 2008Q2

REPORT INFORMATION
  Report Type: 
  Country: None (occurrence: None)
  Receive Date: 20080606
  Receipt Date: 20080530
  Transmission Date: 20081010
  Serious: Yes (Other)
  Sender: FDA-Public Use
  Company Number: 2008S1005433

PATIENT
  Age: 11 Year
  Sex: Male

DRUGS (3)
  1. PEDIA LAX CHEWABLE TABLETS [Suspect]
     Indication: LAXATIVE SUPPORTIVE CARE
     Dosage: 1200 MG; X1; PO
     Route: 048
     Dates: start: 20080529, end: 20080529
  2. PEDIA LAX CHEWABLE TABLETS [Suspect]
  3. CONCERTA [Concomitant]

REACTIONS (4)
  - ABDOMINAL PAIN [None]
  - CONSTIPATION [None]
  - DRUG INEFFECTIVE [None]
  - MALAISE [None]
